FAERS Safety Report 4794480-X (Version None)
Quarter: 2005Q4

REPORT INFORMATION
  Report Type: 
  Country: None (occurrence: None)
  Receive Date: 20051011
  Receipt Date: 20050930
  Transmission Date: 20060501
  Serious: Yes (Other)
  Sender: FDA-Public Use
  Company Number: 200518917GDDC

PATIENT
  Sex: Female

DRUGS (1)
  1. FLAGYL [Suspect]
     Indication: VAGINITIS BACTERIAL
     Route: 048
     Dates: start: 20050904, end: 20050906

REACTIONS (3)
  - HEADACHE [None]
  - OEDEMA [None]
  - RASH [None]
